FAERS Safety Report 4272936-6 (Version None)
Quarter: 2004Q1

REPORT INFORMATION
  Report Type: 
  Country: None (occurrence: None)
  Receive Date: 20040114
  Receipt Date: 20031230
  Transmission Date: 20041129
  Serious: Yes (Hospitalization)
  Sender: FDA-Public Use
  Company Number: UK062321

PATIENT
  Age: 53 Year
  Sex: Female

DRUGS (7)
  1. KINERET [Suspect]
     Indication: RHEUMATOID ARTHRITIS
     Dosage: DAILY, SC
     Route: 058
     Dates: start: 20020324, end: 20031121
  2. OFLOXACIN [Suspect]
     Dosage: 200 MG, DAILY, PO
     Route: 048
     Dates: start: 20031103, end: 20031106
  3. OMEPRAZOLE [Suspect]
     Dosage: DAILY, PO
     Route: 048
     Dates: start: 20031016, end: 20031122
  4. ROFECOXIB [Suspect]
  5. PAROXETINE [Suspect]
  6. CHLORPROMAZINE HCL [Suspect]
     Dosage: 25 MG, DAILY, IV
     Route: 042
     Dates: start: 20031106, end: 20031120
  7. CLOXACILLIN SODIUM [Suspect]
     Dosage: 2 MG, DAILY, PO
     Route: 048
     Dates: start: 20031105, end: 20031121

REACTIONS (3)
  - ARTHRITIS BACTERIAL [None]
  - BIOPSY BONE MARROW ABNORMAL [None]
  - PANCYTOPENIA [None]
